FAERS Safety Report 8570609-2 (Version None)
Quarter: 2012Q3

REPORT INFORMATION
  Report Type: 
  Country: None (occurrence: None)
  Receive Date: 20120804
  Receipt Date: 20120723
  Transmission Date: 20120928
  Serious: No
  Sender: FDA-Public Use
  Company Number: US-009507513-1207USA010843

PATIENT

DRUGS (2)
  1. PEG-INTRON [Suspect]
     Indication: HEPATITIS C
     Dosage: UNK
     Dates: start: 20120420
  2. REBETOL [Suspect]
     Indication: HEPATITIS C
     Dosage: UNK
     Dates: start: 20120420

REACTIONS (6)
  - WHITE BLOOD CELL COUNT DECREASED [None]
  - FATIGUE [None]
  - DIZZINESS [None]
  - IMPATIENCE [None]
  - THIRST [None]
  - ASTHENIA [None]
